FAERS Safety Report 5729647-7 (Version None)
Quarter: 2008Q2

REPORT INFORMATION
  Report Type: 
  Country: None (occurrence: None)
  Receive Date: 20080501
  Receipt Date: 20080417
  Transmission Date: 20081010
  Serious: Yes (Other)
  Sender: FDA-Public Use
  Company Number: 2007AL004599

PATIENT
  Age: 17 Year
  Sex: Male

DRUGS (2)
  1. SERTRALINE HCL [Suspect]
     Indication: ANXIETY
     Dosage: 125 MG; QD; PO
     Route: 048
  2. SERTRALINE HCL [Suspect]
     Indication: OBSESSIVE-COMPULSIVE DISORDER
     Dosage: 125 MG; QD; PO
     Route: 048

REACTIONS (6)
  - ANXIETY [None]
  - DRUG DEPENDENCE [None]
  - FEAR [None]
  - OBSESSIVE-COMPULSIVE DISORDER [None]
  - PARANOIA [None]
  - REFUSAL OF TREATMENT BY PATIENT [None]
